FAERS Safety Report 9628673 (Version 3)
Quarter: 2014Q2

REPORT INFORMATION
  Report Type: Report from Study
  Country: BR (occurrence: BR)
  Receive Date: 20131017
  Receipt Date: 20140428
  Transmission Date: 20141212
  Serious: Yes (Other)
  Sender: FDA-Public Use
  Company Number: BR-ABBVIE-13P-020-1116400-00

PATIENT
  Age: 50 Year
  Sex: Male
  Weight: 69 kg

DRUGS (12)
  1. HUMIRA [Suspect]
     Indication: RHEUMATOID ARTHRITIS
     Route: 058
     Dates: start: 201302, end: 20130704
  2. PREDNISONE [Concomitant]
     Indication: RHEUMATOID ARTHRITIS
     Route: 048
  3. NIMESULIDE [Concomitant]
     Indication: PAIN
     Dosage: AS NEEDED
     Route: 048
     Dates: start: 201207
  4. NIMESULIDE [Concomitant]
     Dates: start: 20131008
  5. MIOSAN [Concomitant]
     Indication: MUSCLE RELAXANT THERAPY
     Route: 048
     Dates: start: 200307
  6. LEVOTHYROXINE [Concomitant]
     Indication: THYROID HORMONE REPLACEMENT THERAPY
     Route: 048
     Dates: start: 2004
  7. AZULFIN [Concomitant]
     Indication: PRODUCT USED FOR UNKNOWN INDICATION
  8. AZULFIN [Concomitant]
  9. NAPROXEN [Concomitant]
     Indication: PRODUCT USED FOR UNKNOWN INDICATION
  10. NAPROXEN [Concomitant]
  11. CAPTOPRIL [Concomitant]
     Indication: BLOOD PRESSURE ABNORMAL
  12. MIOSAN [Concomitant]
     Indication: PRODUCT USED FOR UNKNOWN INDICATION

REACTIONS (8)
  - Blood calcitonin abnormal [Not Recovered/Not Resolved]
  - Blood calcitonin increased [Not Recovered/Not Resolved]
  - Thyroid cancer recurrent [Not Recovered/Not Resolved]
  - Bone pain [Not Recovered/Not Resolved]
  - Back pain [Not Recovered/Not Resolved]
  - Chest pain [Not Recovered/Not Resolved]
  - Bone disorder [Unknown]
  - Pain [Not Recovered/Not Resolved]
